FAERS Safety Report 13764504 (Version 1)
Quarter: 2017Q3

REPORT INFORMATION
  Report Type: Spontaneous
  Country: US (occurrence: US)
  Receive Date: 20170718
  Receipt Date: 20170718
  Transmission Date: 20171127
  Serious: Yes (Death, Other)
  Sender: FDA-Public Use
  Company Number: US-MALLINCKRODT-T201702962

PATIENT
  Age: 89 Year
  Sex: Female

DRUGS (1)
  1. METHADONE [Suspect]
     Active Substance: METHADONE HYDROCHLORIDE
     Indication: PAIN
     Dosage: UNK

REACTIONS (2)
  - Torsade de pointes [Fatal]
  - Electrocardiogram QT prolonged [Unknown]
